FAERS Safety Report 9774209 (Version 2)
Quarter: 2014Q1

REPORT INFORMATION
  Report Type: Spontaneous
  Country: US (occurrence: US)
  Receive Date: 20131220
  Receipt Date: 20140101
  Transmission Date: 20141002
  Serious: Yes (Other)
  Sender: FDA-Public Use
  Company Number: US-ROCHE-1321780

PATIENT
  Age: 65 Year
  Sex: Female
  Weight: 75.82 kg

DRUGS (14)
  1. ACTEMRA [Suspect]
     Indication: RHEUMATOID ARTHRITIS
     Dosage: NOT TO EXCEED 800 MG PER INFUSION.
     Route: 042
     Dates: start: 2005
  2. ACTEMRA [Suspect]
     Dosage: NOT TO EXCEED 800 MG PER INFUSION.
     Route: 042
     Dates: start: 20100907
  3. FOLIC ACID [Concomitant]
     Indication: PRODUCT USED FOR UNKNOWN INDICATION
     Route: 048
     Dates: start: 20100922
  4. METHOTREXATE [Concomitant]
     Indication: RHEUMATOID ARTHRITIS
     Route: 065
     Dates: start: 2007
  5. ACETAMINOPHEN/HYDROCODONE [Concomitant]
     Indication: PAIN
     Dosage: AS NEEDED
     Route: 048
     Dates: start: 20120515
  6. ALPRAZOLAM [Concomitant]
     Indication: PRODUCT USED FOR UNKNOWN INDICATION
     Dosage: AS NEEDED
     Route: 065
  7. ASPRIN-EC [Concomitant]
     Indication: PRODUCT USED FOR UNKNOWN INDICATION
     Route: 048
     Dates: start: 20100506
  8. CALCIUM CARBONATE/MAGNESIUM CARBONATE [Concomitant]
     Indication: PRODUCT USED FOR UNKNOWN INDICATION
     Dosage: 311 MG- 232 MG
     Route: 065
     Dates: start: 20100506
  9. CRESTOR [Concomitant]
     Indication: PRODUCT USED FOR UNKNOWN INDICATION
     Route: 048
     Dates: start: 20130213
  10. INDAPAMIDE [Concomitant]
     Indication: PRODUCT USED FOR UNKNOWN INDICATION
     Route: 048
     Dates: start: 20100506
  11. LEVOCETIRIZINE DIHYDROCHLORIDE [Concomitant]
     Indication: PRODUCT USED FOR UNKNOWN INDICATION
     Dosage: ONCE IN EVENING
     Route: 048
     Dates: start: 20110630
  12. LISINOPRIL [Concomitant]
     Indication: PRODUCT USED FOR UNKNOWN INDICATION
     Route: 048
     Dates: start: 20100508
  13. NISOLDIPINE [Concomitant]
     Indication: PRODUCT USED FOR UNKNOWN INDICATION
     Route: 048
     Dates: start: 20120515
  14. OMEPRAZOLE [Concomitant]
     Indication: PRODUCT USED FOR UNKNOWN INDICATION
     Dosage: 1 CAPSULE EVERY DAY BEFORE A MEAL.
     Route: 048
     Dates: start: 20100506

REACTIONS (1)
  - Diverticulum intestinal haemorrhagic [Recovered/Resolved]
